FAERS Safety Report 15387435 (Version 1)
Quarter: 2018Q3

REPORT INFORMATION
  Report Type: Spontaneous
  Country: JP (occurrence: JP)
  Receive Date: 20180914
  Receipt Date: 20180914
  Transmission Date: 20181010
  Serious: Yes (Other)
  Sender: FDA-Public Use
  Company Number: JP-009507513-1809JPN001542J

PATIENT

DRUGS (1)
  1. KEYTRUDA [Suspect]
     Active Substance: PEMBROLIZUMAB
     Indication: NEOPLASM MALIGNANT
     Dosage: UNK
     Route: 041

REACTIONS (5)
  - Neuropathy peripheral [Unknown]
  - Skin disorder [Unknown]
  - Diarrhoea [Unknown]
  - Interstitial lung disease [Unknown]
  - Colitis [Unknown]
